FAERS Safety Report 11118972 (Version 1)
Quarter: 2015Q2

REPORT INFORMATION
  Report Type: Spontaneous
  Country: US (occurrence: None)
  Receive Date: 20150515
  Receipt Date: 20150515
  Transmission Date: 20150821
  Serious: Yes (Life-Threatening, Disabling)
  Sender: FDA-Public Use
  Company Number: None

PATIENT
  Age: 18 Year
  Sex: Female
  Weight: 81.65 kg

DRUGS (5)
  1. CITALOPRAM [Suspect]
     Active Substance: CITALOPRAM HYDROBROMIDE
     Indication: MAJOR DEPRESSION
     Route: 048
     Dates: start: 20121013, end: 20150327
  2. LOOP RECORDER [Concomitant]
  3. METOPROLOL [Concomitant]
     Active Substance: METOPROLOL
  4. CENTRUM MULTIVITAMINS [Concomitant]
     Active Substance: VITAMINS
  5. CITALOPRAM [Suspect]
     Active Substance: CITALOPRAM HYDROBROMIDE
     Indication: GENERALISED ANXIETY DISORDER
     Route: 048
     Dates: start: 20121013, end: 20150327

REACTIONS (3)
  - Palpitations [None]
  - Atrial tachycardia [None]
  - Chest pain [None]

NARRATIVE: CASE EVENT DATE: 20150101
